FAERS Safety Report 5370339-4 (Version None)
Quarter: 2007Q2

REPORT INFORMATION
  Report Type: 
  Country: None (occurrence: None)
  Receive Date: 20070626
  Receipt Date: 20070615
  Transmission Date: 20071010
  Serious: Yes (Disabling)
  Sender: FDA-Public Use
  Company Number: AU-ROCHE-502403

PATIENT
  Age: 59 Year
  Sex: Male
  Weight: 77.2 kg

DRUGS (1)
  1. PEG-INTERFERON ALFA 2A (RO 25-8310) [Suspect]
     Dosage: DOSAGE FORM: INJECTION.
     Route: 058
     Dates: start: 20070504

REACTIONS (1)
  - DEAFNESS [None]
